FAERS Safety Report 7428453-5 (Version None)
Quarter: 2011Q2

REPORT INFORMATION
  Report Type: 
  Country: None (occurrence: None)
  Receive Date: 20110421
  Receipt Date: 20110411
  Transmission Date: 20111010
  Serious: Yes (Other)
  Sender: FDA-Public Use
  Company Number: PHHY2011US03009

PATIENT
  Sex: Female

DRUGS (6)
  1. RECLAST [Suspect]
     Dosage: 5 MG/100 ML, ONCE YEARLY
     Dates: start: 20101102
  2. BENAZEPLUS [Concomitant]
  3. EVISTA [Concomitant]
  4. HYDROCHLOROTHIAZIDE [Concomitant]
  5. LIPITOR [Concomitant]
  6. ACETYLSALICYLIC ACID SRT [Concomitant]

REACTIONS (4)
  - PHOTOPHOBIA [None]
  - PAIN [None]
  - INTRAOCULAR PRESSURE INCREASED [None]
  - OEDEMA PERIPHERAL [None]
